FAERS Safety Report 10690500 (Version 1)
Quarter: 2015Q1

REPORT INFORMATION
  Report Type: Spontaneous
  Country: CH (occurrence: None)
  Receive Date: 20150102
  Receipt Date: 20150102
  Transmission Date: 20150720
  Serious: Yes (Death)
  Sender: FDA-Public Use
  Company Number: CH-ZYDUS-006117

PATIENT
  Age: 76 Year

DRUGS (3)
  1. TORASEMIDE (TORASEMIDE) [Suspect]
     Active Substance: TORSEMIDE
  2. MIRTAZAPINE (MIRTAZAPINE) [Suspect]
     Active Substance: MIRTAZAPINE
  3. HALOPERIDOL (HALOPERIDOL) (HALOPERIDOL) [Suspect]
     Active Substance: HALOPERIDOL

REACTIONS (2)
  - Parotitis [None]
  - Dry mouth [None]
